FAERS Safety Report 23491866 (Version 1)
Quarter: 2024Q1

REPORT INFORMATION
  Report Type: Report from Study
  Country: US (occurrence: US)
  Receive Date: 20240207
  Receipt Date: 20240207
  Transmission Date: 20240410
  Serious: No
  Sender: FDA-Public Use
  Company Number: US-ORG100014127-2023001084

PATIENT
  Sex: Male

DRUGS (11)
  1. LYSODREN [Suspect]
     Active Substance: MITOTANE
     Indication: Adrenal gland cancer
     Dosage: 1 TABLET TWICE DAILY FOR ONE WEEK
     Route: 048
     Dates: start: 20231005
  2. LYSODREN [Suspect]
     Active Substance: MITOTANE
     Indication: Adrenal gland cancer
     Dosage: 2 TABLET TWICE DAILY FOR ONE WEEK
     Route: 048
  3. LYSODREN [Suspect]
     Active Substance: MITOTANE
     Indication: Adrenal gland cancer
     Dosage: TAKE (ALONG WITH HYDROCORTISONE) 2000 MG TWICE DAILY
     Route: 048
  4. CORTEF TAB 10MG [Concomitant]
     Indication: Product used for unknown indication
  5. ACETAMINOPHE TAB 650MG [Concomitant]
     Indication: Product used for unknown indication
  6. DILAUDID INJ 2MG/ML [Concomitant]
     Indication: Product used for unknown indication
  7. EFFER-K TAB 20MEQ [Concomitant]
     Indication: Product used for unknown indication
  8. HYDRALAZINE INJ 20MG/ML [Concomitant]
     Indication: Product used for unknown indication
  9. ONDANSETRON TAB 4MG ODT [Concomitant]
     Indication: Product used for unknown indication
  10. OXYCODONE TAB 10MG [Concomitant]
     Indication: Product used for unknown indication
  11. MORPHINE SULFATE [Concomitant]
     Active Substance: MORPHINE SULFATE
     Indication: Product used for unknown indication

REACTIONS (1)
  - Feeling abnormal [Unknown]
